APPROVED DRUG PRODUCT: CLENPIQ
Active Ingredient: CITRIC ACID; MAGNESIUM OXIDE; SODIUM PICOSULFATE
Strength: 12GM/BOT;3.5GM/BOT;10MG/BOT
Dosage Form/Route: SOLUTION;ORAL
Application: N209589 | Product #001
Applicant: FERRING PHARMACEUTICALS INC
Approved: Nov 28, 2017 | RLD: Yes | RS: Yes | Type: RX

PATENTS:
Patent 9827231 | Expires: Jun 26, 2034
Patent 11191753 | Expires: Jun 23, 2034
Patent 10624879 | Expires: Jun 23, 2034
Patent 12458634 | Expires: Jan 27, 2038